FAERS Safety Report 15352015 (Version 10)
Quarter: 2021Q4

REPORT INFORMATION
  Report Type: Report from Study
  Country: JP (occurrence: JP)
  Receive Date: 20180905
  Receipt Date: 20211216
  Transmission Date: 20220304
  Serious: Yes (Death, Hospitalization)
  Sender: FDA-Public Use
  Company Number: JP-CHUGAI-C2018020021ROCHE

PATIENT
  Age: 46 Year
  Sex: Female
  Weight: 52.9 kg

DRUGS (6)
  1. ATEZOLIZUMAB [Suspect]
     Active Substance: ATEZOLIZUMAB
     Indication: Lung adenocarcinoma
     Route: 042
     Dates: start: 20180821, end: 20181029
  2. BEVACIZUMAB [Suspect]
     Active Substance: BEVACIZUMAB
     Indication: Lung adenocarcinoma
     Dosage: 400MG/16ML (15MG/KG)?MOST RECENT DOSE OF BEVACIZUMAB PRIOR TO EVENT: 21/AUG/2018
     Route: 042
     Dates: start: 20180821
  3. CODEINE PHOSPHATE [Concomitant]
     Active Substance: CODEINE PHOSPHATE
     Indication: Cough
     Dosage: ONE PACK ONCE
     Route: 048
     Dates: start: 20180723
  4. MAGNESIUM OXIDE [Concomitant]
     Active Substance: MAGNESIUM OXIDE
     Indication: Constipation
     Route: 048
     Dates: start: 20180723
  5. FERROUS CITRATE [Concomitant]
     Active Substance: FERROUS CITRATE
     Indication: Anaemia
     Route: 048
     Dates: start: 20180723
  6. CALONAL [Concomitant]
     Active Substance: ACETAMINOPHEN
     Indication: Pyrexia
     Dosage: AT THE SYMPTOM
     Route: 048
     Dates: start: 20180822

REACTIONS (3)
  - Death [Fatal]
  - Pulmonary haemorrhage [Recovered/Resolved]
  - Pneumonia [Recovered/Resolved]

NARRATIVE: CASE EVENT DATE: 20180822
